FAERS Safety Report 4911924-0 (Version None)
Quarter: 2006Q1

REPORT INFORMATION
  Report Type: 
  Country: None (occurrence: None)
  Receive Date: 20060213
  Receipt Date: 20060213
  Transmission Date: 20060701
  Serious: Yes (Hospitalization)
  Sender: FDA-Public Use
  Company Number: None

PATIENT
  Sex: Male
  Weight: 115.3 kg

DRUGS (2)
  1. ASPIRIN [Suspect]
     Indication: CARDIAC DISORDER
     Dosage: 325MG  DAILY  PO
     Route: 048
  2. ETODOLAC [Suspect]
     Indication: ARTHRALGIA

REACTIONS (7)
  - ASTHENIA [None]
  - DIZZINESS [None]
  - FAECES DISCOLOURED [None]
  - HAEMATOCRIT ABNORMAL [None]
  - HAEMOGLOBIN ABNORMAL [None]
  - TACHYCARDIA [None]
  - UPPER GASTROINTESTINAL HAEMORRHAGE [None]
